FAERS Safety Report 12681180 (Version 1)
Quarter: 2016Q3

REPORT INFORMATION
  Report Type: Spontaneous
  Country: US (occurrence: US)
  Receive Date: 20160824
  Receipt Date: 20160824
  Transmission Date: 20161109
  Serious: Yes (Other)
  Sender: FDA-Public Use
  Company Number: US-SAOL THERAPEUTICS-2016SAO00472

PATIENT
  Age: 50 Year
  Sex: Male
  Weight: 90.7 kg

DRUGS (11)
  1. VERAPAMIL ER [Concomitant]
     Active Substance: VERAPAMIL HYDROCHLORIDE
     Dosage: 240 MG, 2X/DAY
  2. ALLOPURINOL. [Concomitant]
     Active Substance: ALLOPURINOL
     Dosage: 100 MG, 2X/DAY
  3. BACLOFEN. [Suspect]
     Active Substance: BACLOFEN
     Indication: MUSCLE SPASTICITY
     Route: 037
  4. LOSARTAN POTASSIUM. [Concomitant]
     Active Substance: LOSARTAN POTASSIUM
     Dosage: 100 MG, 1X/DAY
  5. ATORVASTATIN [Concomitant]
     Active Substance: ATORVASTATIN
     Dosage: 20 MG, 1X/DAY
  6. MINOXIDIL. [Concomitant]
     Active Substance: MINOXIDIL
     Dosage: 2.5 MG, 2X/DAY
  7. BACLOFEN. [Suspect]
     Active Substance: BACLOFEN
     Indication: CEREBROVASCULAR ACCIDENT
  8. FUROSEMIDE. [Concomitant]
     Active Substance: FUROSEMIDE
     Dosage: 20 MG, 2X/DAY
  9. LABETALOL HCL [Concomitant]
     Active Substance: LABETALOL HYDROCHLORIDE
     Dosage: 200 MG, 2X/DAY
  10. ALFUZOSIN HCL ER [Concomitant]
     Dosage: 10 MG, 1X/DAY
  11. BACLOFEN. [Concomitant]
     Active Substance: BACLOFEN
     Dosage: 10 MG, 2X/DAY
     Route: 048

REACTIONS (3)
  - Implant site scar [Unknown]
  - Pain [Unknown]
  - Therapy non-responder [Unknown]

NARRATIVE: CASE EVENT DATE: 20160229
